FAERS Safety Report 4593453-X (Version None)
Quarter: 2005Q1

REPORT INFORMATION
  Report Type: 
  Country: None (occurrence: None)
  Receive Date: 20050224
  Receipt Date: 20040713
  Transmission Date: 20050727
  Serious: No
  Sender: FDA-Public Use
  Company Number: US-BRISTOL-MYERS SQUIBB COMPANY-12643748

PATIENT
  Age: 26 Year
  Sex: Female
  Weight: 87 kg

DRUGS (1)
  1. EXCEDRIN (MIGRAINE) [Suspect]
     Indication: HEADACHE
     Route: 048
     Dates: start: 20040713, end: 20040713

REACTIONS (2)
  - FLUSHING [None]
  - RASH PRURITIC [None]
